FAERS Safety Report 22618662 (Version 1)
Quarter: 2023Q2

REPORT INFORMATION
  Report Type: Spontaneous
  Country: NL (occurrence: NL)
  Receive Date: 20230620
  Receipt Date: 20230620
  Transmission Date: 20230722
  Serious: No
  Sender: FDA-Public Use
  Company Number: None

PATIENT
  Sex: Female

DRUGS (1)
  1. PROPRANOLOL HYDROCHLORIDE [Suspect]
     Active Substance: PROPRANOLOL HYDROCHLORIDE
     Indication: Infantile haemangioma
     Dosage: 1 DF, DRANK, 3.75 MG/ML (MILLIGRAM PER MILLILITER)
     Route: 048
     Dates: start: 20220701

REACTIONS (2)
  - Nightmare [Recovered/Resolved]
  - Insomnia [Recovered/Resolved]
